FAERS Safety Report 4402279-9 (Version None)
Quarter: 2004Q3

REPORT INFORMATION
  Report Type: 
  Country: None (occurrence: None)
  Receive Date: 20040720
  Receipt Date: 20040719
  Transmission Date: 20050211
  Serious: Yes (Other)
  Sender: FDA-Public Use
  Company Number: US-GLAXOSMITHKLINE-A0518780A

PATIENT
  Age: 62 Year
  Sex: Female

DRUGS (6)
  1. REQUIP [Suspect]
     Indication: PARKINSON'S DISEASE
     Dosage: 4MG FOUR TIMES PER DAY
     Route: 048
  2. SINEMET [Concomitant]
  3. LASIX [Concomitant]
  4. POTASSIUM [Concomitant]
  5. MULTIVITAMIN [Concomitant]
  6. ZOLOFT [Concomitant]

REACTIONS (5)
  - DISORIENTATION [None]
  - MEDICATION ERROR [None]
  - SOMNOLENCE [None]
  - SUDDEN ONSET OF SLEEP [None]
  - TRANCE [None]
